FAERS Safety Report 9780083 (Version 2)
Quarter: 2014Q1

REPORT INFORMATION
  Report Type: Spontaneous
  Country: CO (occurrence: CO)
  Receive Date: 20131223
  Receipt Date: 20140124
  Transmission Date: 20141002
  Serious: Yes (Other)
  Sender: FDA-Public Use
  Company Number: CO-BAXTER-2013BAX050905

PATIENT
  Sex: Female

DRUGS (1)
  1. AGUA ESTERIL PARA INYECCION USP [Suspect]
     Indication: OXYGEN SUPPLEMENTATION
     Route: 055

REACTIONS (2)
  - Bacterial test positive [Unknown]
  - Bacteraemia [Unknown]
